FAERS Safety Report 9533922 (Version 3)
Quarter: 2013Q3

REPORT INFORMATION
  Report Type: Spontaneous
  Country: JP (occurrence: JP)
  Receive Date: 20130918
  Receipt Date: 20130923
  Transmission Date: 20140515
  Serious: Yes (Hospitalization, Other)
  Sender: FDA-Public Use
  Company Number: JP-ABBVIE-13X-087-1140225-00

PATIENT
  Age: 50 Year
  Sex: Male

DRUGS (7)
  1. CLARITH [Suspect]
     Indication: MYCOBACTERIUM AVIUM COMPLEX INFECTION
  2. CLARITH [Suspect]
     Indication: PROPHYLAXIS
  3. ATOVAQUONE [Suspect]
     Indication: PNEUMOCYSTIS JIROVECII PNEUMONIA
  4. ATOVAQUONE [Suspect]
  5. SULFAMETHOXAZOLE AND TRIMETHOPRIM [Suspect]
     Indication: PNEUMOCYSTIS JIROVECII PNEUMONIA
  6. SULFAMETHOXAZOLE AND TRIMETHOPRIM [Suspect]
     Indication: PROPHYLAXIS
  7. GANCICLOVIR [Suspect]
     Indication: PRODUCT USED FOR UNKNOWN INDICATION

REACTIONS (6)
  - Syncope [Unknown]
  - Renal failure acute [Unknown]
  - Pyrexia [Unknown]
  - Erythema [Unknown]
  - Ileus [Unknown]
  - Liver disorder [Recovering/Resolving]
